FAERS Safety Report 4680244-4 (Version None)
Quarter: 2005Q2

REPORT INFORMATION
  Report Type: 
  Country: None (occurrence: None)
  Receive Date: 20050525
  Receipt Date: 20050207
  Transmission Date: 20051028
  Serious: No
  Sender: FDA-Public Use
  Company Number: 212272

PATIENT
  Sex: Male

DRUGS (1)
  1. RAPTIVA [Suspect]

REACTIONS (4)
  - ARTHRALGIA [None]
  - BURNING SENSATION [None]
  - MYALGIA [None]
  - NASAL CONGESTION [None]
